FAERS Safety Report 6589405-0 (Version None)
Quarter: 2010Q1

REPORT INFORMATION
  Report Type: 
  Country: None (occurrence: None)
  Receive Date: 20100205
  Receipt Date: 20100128
  Transmission Date: 20100710
  Serious: Yes (Other)
  Sender: FDA-Public Use
  Company Number: CIP10000225

PATIENT
  Age: 77 Year
  Sex: Female

DRUGS (4)
  1. RISEDRONATE SODIUM [Suspect]
     Indication: OSTEOPOROSIS
     Dosage: 17.5 MG ONE DOSE ONLY, ORAL
     Route: 048
     Dates: start: 20091103, end: 20091103
  2. LEVOTHYROXINE SODIUM [Concomitant]
  3. CARBIQUINONE (UBIDECARENONE) [Concomitant]
  4. VERAPAMIL HYDROCHLORIDE [Concomitant]

REACTIONS (2)
  - BLOOD PRESSURE FLUCTUATION [None]
  - DIZZINESS [None]
